FAERS Safety Report 5601719-7 (Version None)
Quarter: 2008Q1

REPORT INFORMATION
  Report Type: 
  Country: None (occurrence: None)
  Receive Date: 20080124
  Receipt Date: 20080123
  Transmission Date: 20080703
  Serious: Yes (Hospitalization)
  Sender: FDA-Public Use
  Company Number: US-GENENTECH-253858

PATIENT
  Sex: Male
  Weight: 58.957 kg

DRUGS (5)
  1. RAPTIVA [Suspect]
     Indication: PSORIASIS
     Dosage: UNK, SINGLE
     Route: 058
     Dates: start: 20071207
  2. RAPTIVA [Suspect]
     Dosage: 0.06 MG/KG, SINGLE
     Route: 058
  3. RAPTIVA [Suspect]
     Dosage: 1 MG/KG, SINGLE
     Route: 042
  4. IBUPROFEN [Concomitant]
     Indication: HEADACHE
     Dosage: UNK, PRN
  5. ACETAMINOPHEN [Concomitant]
     Indication: HEADACHE
     Dosage: UNK, PRN

REACTIONS (3)
  - CONVULSION [None]
  - HEADACHE [None]
  - LOSS OF CONSCIOUSNESS [None]
